FAERS Safety Report 26209534 (Version 1)
Quarter: 2025Q4

REPORT INFORMATION
  Report Type: Spontaneous
  Country: AU (occurrence: AU)
  Receive Date: 20251229
  Receipt Date: 20251229
  Transmission Date: 20260118
  Serious: Yes (Death, Other)
  Sender: NOVARTIS
  Company Number: AU-002147023-NVSC2025AU197331

PATIENT

DRUGS (5)
  1. SACUBITRIL\VALSARTAN [Suspect]
     Active Substance: SACUBITRIL\VALSARTAN
     Indication: Product used for unknown indication
     Dosage: UNK
     Route: 064
  2. DAPAGLIFLOZIN [Suspect]
     Active Substance: DAPAGLIFLOZIN
     Indication: Product used for unknown indication
     Dosage: UNK
     Route: 064
  3. IVABRADINE [Suspect]
     Active Substance: IVABRADINE
     Indication: Product used for unknown indication
     Dosage: UNK
     Route: 064
  4. MIFEPRISTONE [Concomitant]
     Active Substance: MIFEPRISTONE
     Indication: Foetal exposure during pregnancy
     Dosage: UNK
     Route: 065
  5. MISOPROSTOL [Concomitant]
     Active Substance: MISOPROSTOL
     Indication: Foetal exposure during pregnancy
     Dosage: UNK
     Route: 065

REACTIONS (4)
  - Cardiomegaly [Fatal]
  - Hydrops foetalis [Fatal]
  - Kidney enlargement [Fatal]
  - Foetal exposure during pregnancy [Fatal]
